FAERS Safety Report 13829884 (Version 1)
Quarter: 2017Q3

REPORT INFORMATION
  Report Type: Spontaneous
  Country: US (occurrence: US)
  Receive Date: 20170803
  Receipt Date: 20170803
  Transmission Date: 20171127
  Serious: Yes (Other)
  Sender: FDA-Public Use
  Company Number: US-RECKITT BENCKISER HEALTHCARE INT LIMITED-RB-91503-2017

PATIENT
  Age: 12 Year
  Sex: Female

DRUGS (1)
  1. MUCINEX FAST-MAX COLD, FLU AND SORE THROAT CLEAR AND COOL [Suspect]
     Active Substance: ACETAMINOPHEN\DEXTROMETHORPHAN HYDROBROMIDE\GUAIFENESIN\PHENYLEPHRINE HYDROCHLORIDE
     Indication: RESPIRATORY TRACT CONGESTION
     Dosage: QD, 2-4 TIMES DAILY
     Route: 065
     Dates: start: 20160912, end: 20160930

REACTIONS (6)
  - Tinnitus [Recovered/Resolved]
  - Mood altered [Recovered/Resolved]
  - Mydriasis [Recovered/Resolved]
  - Psychomotor hyperactivity [Recovered/Resolved]
  - Irritability [Recovered/Resolved]
  - Pupil fixed [Recovered/Resolved]

NARRATIVE: CASE EVENT DATE: 20160930
